FAERS Safety Report 8759190 (Version 2)
Quarter: 2012Q4

REPORT INFORMATION
  Report Type: Report from Study
  Country: CA (occurrence: CA)
  Receive Date: 20120829
  Receipt Date: 20120906
  Transmission Date: 20130627
  Serious: Yes (Other)
  Sender: FDA-Public Use
  Company Number: CA-JNJFOC-20120812770

PATIENT
  Age: 68 Year
  Sex: Female
  Weight: 48.3 kg

DRUGS (2)
  1. REMICADE [Suspect]
     Indication: RHEUMATOID ARTHRITIS
     Route: 042
     Dates: start: 20080505, end: 20120703
  2. METHOTREXATE [Concomitant]
     Route: 058

REACTIONS (1)
  - Herpes zoster [Unknown]
